FAERS Safety Report 4843994-2 (Version None)
Quarter: 2005Q4

REPORT INFORMATION
  Report Type: 
  Country: None (occurrence: None)
  Receive Date: 20051202
  Receipt Date: 20050602
  Transmission Date: 20060501
  Serious: No
  Sender: FDA-Public Use
  Company Number: US-GLAXOSMITHKLINE-A0560957A

PATIENT
  Age: 74 Year
  Sex: Female

DRUGS (2)
  1. AUGMENTIN [Suspect]
     Indication: ACUTE SINUSITIS
     Dosage: 2TAB PER DAY
     Route: 048
  2. SOTALOL [Concomitant]

REACTIONS (1)
  - DRUG INEFFECTIVE [None]
